FAERS Safety Report 24095206 (Version 1)
Quarter: 2024Q3

REPORT INFORMATION
  Report Type: Report from Study
  Country: US (occurrence: None)
  Receive Date: 20240716
  Receipt Date: 20240716
  Transmission Date: 20241016
  Serious: Yes (Hospitalization)
  Sender: ASTRAZENECA
  Company Number: 2020SE63455

PATIENT
  Age: 60 Year
  Sex: Female

DRUGS (7)
  1. TAGRISSO [Suspect]
     Active Substance: OSIMERTINIB
     Indication: Lung carcinoma cell type unspecified stage 0
     Route: 048
     Dates: start: 20190810
  2. XANAX [Concomitant]
     Active Substance: ALPRAZOLAM
  3. TARCEVA [Concomitant]
     Active Substance: ERLOTINIB HYDROCHLORIDE
  4. FANAPT [Concomitant]
     Active Substance: ILOPERIDONE
  5. PAXIL [Concomitant]
     Active Substance: PAROXETINE HYDROCHLORIDE
  6. ABILIFY [Concomitant]
     Active Substance: ARIPIPRAZOLE
  7. ATIVAN [Concomitant]
     Active Substance: LORAZEPAM

REACTIONS (2)
  - Mental disorder [Unknown]
  - Product dose omission issue [Unknown]
